FAERS Safety Report 12755972 (Version 2)
Quarter: 2017Q3

REPORT INFORMATION
  Report Type: Spontaneous
  Country: US (occurrence: US)
  Receive Date: 20160916
  Receipt Date: 20170707
  Transmission Date: 20171127
  Serious: Yes (Other)
  Sender: FDA-Public Use
  Company Number: PHEH2016US023166

PATIENT
  Age: 61 Year
  Sex: Male

DRUGS (2)
  1. TAFINLAR [Suspect]
     Active Substance: DABRAFENIB MESYLATE
     Indication: HEPATIC CANCER
     Dosage: 1 DF, QD
     Route: 048
     Dates: start: 20160715, end: 20170629
  2. MEKINIST [Suspect]
     Active Substance: TRAMETINIB DIMETHYL SULFOXIDE
     Indication: HEPATIC CANCER
     Dosage: 1 DF, QD
     Route: 048
     Dates: start: 20160715, end: 20170629

REACTIONS (4)
  - Product use in unapproved indication [Unknown]
  - Malignant neoplasm progression [Unknown]
  - Arthritis [Unknown]
  - Hepatic cancer [Unknown]

NARRATIVE: CASE EVENT DATE: 20160715
